FAERS Safety Report 7909488-2 (Version None)
Quarter: 2011Q4

REPORT INFORMATION
  Report Type: 
  Country: None (occurrence: None)
  Receive Date: 20111111
  Receipt Date: 20111107
  Transmission Date: 20120403
  Serious: Yes (Death, Hospitalization)
  Sender: FDA-Public Use
  Company Number: CA-BRISTOL-MYERS SQUIBB COMPANY-15965718

PATIENT
  Age: 63 Year
  Sex: Male
  Weight: 64 kg

DRUGS (16)
  1. PREDNISONE TAB [Concomitant]
     Dates: start: 20110622
  2. MORPHINE [Concomitant]
     Dates: start: 20110324
  3. PANTOPRAZOLE [Concomitant]
     Dates: start: 20110526
  4. FUROSEMIDE [Concomitant]
     Dates: start: 20110526
  5. SENNA [Concomitant]
     Dates: start: 20110324
  6. TRIMIPRAMINE MALEATE [Concomitant]
     Dates: start: 20080101
  7. ERBITUX [Suspect]
     Indication: HEAD AND NECK CANCER
     Dosage: 28JUL11 26MAY11-26MAY11400MG/M2(1D) ON D1 2JUN11-UNK 250MG/M2 D1,D8,D15,INTR4AUG11,REST ON19AUG11
     Route: 065
     Dates: start: 20110526
  8. DIPHENHYDRAMINE HCL [Concomitant]
     Dates: start: 20110526
  9. LEVOTHYROXINE SODIUM [Concomitant]
     Dates: start: 20101001
  10. DEXAMETHASONE [Concomitant]
     Dates: start: 20110526
  11. FLUOROURACIL [Suspect]
     Indication: HEAD AND NECK CANCER
     Dosage: LAST DOSE:28JUL11 D1-D4
     Route: 042
     Dates: start: 20110526, end: 20110728
  12. LORAZEPAM [Concomitant]
     Dates: start: 19950101
  13. MANNITOL [Concomitant]
     Dates: start: 20110526
  14. CISPLATIN [Suspect]
     Indication: HEAD AND NECK CANCER
     Dosage: LAST DOSE:28JUL11
     Route: 042
     Dates: start: 20110526, end: 20110728
  15. FLURAZEPAM [Concomitant]
     Dates: start: 20100301
  16. DOCUSATE [Concomitant]
     Dates: start: 20110324

REACTIONS (2)
  - JOINT ABSCESS [None]
  - HYPOTENSION [None]
